FAERS Safety Report 7685941-4 (Version None)
Quarter: 2011Q3

REPORT INFORMATION
  Report Type: 
  Country: None (occurrence: None)
  Receive Date: 20110816
  Receipt Date: 20110804
  Transmission Date: 20111222
  Serious: Yes (Other)
  Sender: FDA-Public Use
  Company Number: PHFR2011GB00899

PATIENT
  Sex: Male

DRUGS (1)
  1. CLOZAPINE [Suspect]
     Indication: SCHIZOPHRENIA
     Route: 048
     Dates: start: 20070403

REACTIONS (8)
  - RED BLOOD CELL COUNT INCREASED [None]
  - THALASSAEMIA BETA [None]
  - MEAN CELL VOLUME ABNORMAL [None]
  - BLOOD POTASSIUM INCREASED [None]
  - BLOOD LACTATE DEHYDROGENASE DECREASED [None]
  - EOSINOPHIL COUNT INCREASED [None]
  - MEAN CELL HAEMOGLOBIN DECREASED [None]
  - BLOOD SODIUM INCREASED [None]
